FAERS Safety Report 5122348-8 (Version None)
Quarter: 2006Q4

REPORT INFORMATION
  Report Type: 
  Country: None (occurrence: None)
  Receive Date: 20061004
  Receipt Date: 20060922
  Transmission Date: 20070319
  Serious: Yes (Other)
  Sender: FDA-Public Use
  Company Number: 2006US-03537

PATIENT
  Age: 18 Year
  Sex: Male

DRUGS (1)
  1. ISOTRETINOIN [Suspect]
     Dosage: 40 MG, BID; ORAL
     Route: 048
     Dates: start: 20060523, end: 20060701

REACTIONS (2)
  - CORNEAL EROSION [None]
  - PHOTOPHOBIA [None]
